FAERS Safety Report 15156463 (Version 1)
Quarter: 2018Q3

REPORT INFORMATION
  Report Type: Spontaneous
  Country: US (occurrence: US)
  Receive Date: 20180717
  Receipt Date: 20180717
  Transmission Date: 20181010
  Serious: No
  Sender: FDA-Public Use
  Company Number: US-BAUSCH-BL-2017-028464

PATIENT
  Sex: Female

DRUGS (2)
  1. XIFAXAN [Suspect]
     Active Substance: RIFAXIMIN
     Indication: GASTROINTESTINAL BACTERIAL OVERGROWTH
     Dosage: FOR A FEW DAYS
     Route: 065
  2. XIFAXAN [Suspect]
     Active Substance: RIFAXIMIN
     Indication: FLATULENCE
     Dosage: TOOK IT AGAIN
     Route: 065

REACTIONS (5)
  - Gastrointestinal bacterial overgrowth [Unknown]
  - Abdominal discomfort [Unknown]
  - Impaired quality of life [Unknown]
  - Off label use [Unknown]
  - Condition aggravated [Unknown]
